FAERS Safety Report 23472898 (Version 3)
Quarter: 2025Q3

REPORT INFORMATION
  Report Type: Spontaneous
  Country: US (occurrence: US)
  Receive Date: 20240203
  Receipt Date: 20250809
  Transmission Date: 20251021
  Serious: Yes (Other)
  Sender: AMGEN
  Company Number: US-HORIZON THERAPEUTICS-HZN-2022-005642

PATIENT
  Age: 77 Year
  Sex: Female
  Weight: 216 kg

DRUGS (15)
  1. TEPEZZA [Suspect]
     Active Substance: TEPROTUMUMAB-TRBW
     Indication: Endocrine ophthalmopathy
     Dosage: 10 MILLIGRAM, Q3WK
     Route: 042
     Dates: start: 20220208
  2. TEPEZZA [Suspect]
     Active Substance: TEPROTUMUMAB-TRBW
     Indication: Toxic goitre
     Dosage: 20 MILLIGRAM/KILOGRAM, SECOND INFUSION
     Route: 042
     Dates: start: 20220308
  3. TEPEZZA [Suspect]
     Active Substance: TEPROTUMUMAB-TRBW
     Dosage: 20 MILLIGRAM/KILOGRAM, Q3WK, THIRD INFUSION
     Route: 042
     Dates: start: 20250329
  4. TEPEZZA [Suspect]
     Active Substance: TEPROTUMUMAB-TRBW
     Dosage: 20 MILLIGRAM/KILOGRAM, Q3WK, FOURTH INFUSION
     Route: 042
     Dates: start: 20250405
  5. TEPEZZA [Suspect]
     Active Substance: TEPROTUMUMAB-TRBW
     Dosage: 20 MILLIGRAM/KILOGRAM, Q3WK, FIFTH INFUSION
     Route: 042
     Dates: start: 20250426
  6. TEPEZZA [Suspect]
     Active Substance: TEPROTUMUMAB-TRBW
     Dosage: 20 MILLIGRAM/KILOGRAM, Q3WK, SIXTH INFUSION
     Route: 042
     Dates: start: 20220517
  7. TEPEZZA [Suspect]
     Active Substance: TEPROTUMUMAB-TRBW
     Dosage: 20 MILLIGRAM/KILOGRAM, Q3WK
     Route: 042
     Dates: start: 20220607
  8. PREDNISONE [Suspect]
     Active Substance: PREDNISONE
     Indication: Product used for unknown indication
     Dosage: 20 MILLIGRAM, QD
     Route: 048
  9. PREDNISONE [Suspect]
     Active Substance: PREDNISONE
     Dosage: 10 MILLIGRAM, QD
     Route: 048
  10. LEVOTHYROXINE SODIUM [Concomitant]
     Active Substance: LEVOTHYROXINE SODIUM
     Dosage: 125 MICROGRAM, QD
     Route: 065
  11. LEVOTHYROXINE SODIUM [Concomitant]
     Active Substance: LEVOTHYROXINE SODIUM
     Dosage: 112 MICROGRAM, QD
     Route: 065
  12. PAROXETINE [Concomitant]
     Active Substance: PAROXETINE
     Dosage: UNK UNK, QD
     Dates: start: 202211
  13. OMEPRAZOLE [Concomitant]
     Active Substance: OMEPRAZOLE
     Dosage: 20 MILLIGRAM, QD
  14. VITAMIN D3 [Concomitant]
     Active Substance: CHOLECALCIFEROL
  15. VITAMIN C [Concomitant]
     Active Substance: ASCORBIC ACID

REACTIONS (9)
  - Deafness [Not Recovered/Not Resolved]
  - Palpitations [Unknown]
  - Tremor [Unknown]
  - Diarrhoea [Unknown]
  - Anxiety [Unknown]
  - Thyroid disorder [Unknown]
  - Blood pressure abnormal [Unknown]
  - Hypoacusis [Unknown]
  - Muscle spasms [Unknown]

NARRATIVE: CASE EVENT DATE: 20220321
